FAERS Safety Report 8255364-8 (Version None)
Quarter: 2012Q1

REPORT INFORMATION
  Report Type: 
  Country: None (occurrence: None)
  Receive Date: 20120329
  Receipt Date: 20120314
  Transmission Date: 20120608
  Serious: Yes (Life-Threatening, Hospitalization, Disabling)
  Sender: FDA-Public Use
  Company Number: 2012030044

PATIENT
  Age: 87 Year
  Sex: Female

DRUGS (6)
  1. TORSEMIDE [Suspect]
     Indication: OEDEMA
     Dosage: 8 MG (8 MG, 1 IN 1 D), ORAL
     Route: 048
     Dates: start: 20101206, end: 20101224
  2. NORVASC [Suspect]
     Indication: HYPERTENSION
     Dosage: (7.5 MG), ORAL
     Route: 048
  3. ALPROSTADIL [Concomitant]
  4. PLETAL [Concomitant]
  5. ANPLAG (SARPOGRELATE HYDROCHLORIDE) [Suspect]
     Indication: PERIPHERAL ARTERIAL OCCLUSIVE DISEASE
     Dosage: (300 MG), ORAL
     Route: 048
     Dates: start: 20101123
  6. DORNER (BERAPROSTSODIUM) [Concomitant]

REACTIONS (6)
  - LEG AMPUTATION [None]
  - HYPERTENSION [None]
  - VASCULAR INSUFFICIENCY [None]
  - OEDEMA [None]
  - CONDITION AGGRAVATED [None]
  - DRUG INEFFECTIVE [None]
